FAERS Safety Report 9603720 (Version 4)
Quarter: 2014Q3

REPORT INFORMATION
  Report Type: Spontaneous
  Country: US (occurrence: US)
  Receive Date: 20131007
  Receipt Date: 20140903
  Transmission Date: 20150326
  Serious: Yes (Life-Threatening, Other)
  Sender: FDA-Public Use
  Company Number: US-ABBVIE-13P-163-1154191-00

PATIENT
  Sex: Male

DRUGS (3)
  1. DEPAKENE [Suspect]
     Active Substance: VALPROIC ACID
     Indication: PRODUCT USED FOR UNKNOWN INDICATION
     Dates: start: 1977, end: 199405
  2. PHENOBARBITAL. [Concomitant]
     Active Substance: PHENOBARBITAL
     Indication: PRODUCT USED FOR UNKNOWN INDICATION
  3. DEPAKOTE [Suspect]
     Active Substance: DIVALPROEX SODIUM
     Indication: PRODUCT USED FOR UNKNOWN INDICATION
     Dates: start: 199405, end: 201306

REACTIONS (29)
  - Hypertriglyceridaemia [Unknown]
  - Anxiety [Unknown]
  - Testicular disorder [Unknown]
  - Glucose tolerance impaired [Unknown]
  - Cytogenetic abnormality [Unknown]
  - Coronary artery disease [Unknown]
  - Erectile dysfunction [Unknown]
  - Testicular atrophy [Unknown]
  - Mobility decreased [Unknown]
  - Pain [Unknown]
  - Reproductive tract disorder [Unknown]
  - Pancreatitis [Unknown]
  - Hypertension [Recovering/Resolving]
  - Hyperammonaemia [Unknown]
  - Cardiovascular disorder [Unknown]
  - Injury [Unknown]
  - Coronary artery disease [Unknown]
  - Spermatozoa abnormal [Unknown]
  - Hormone level abnormal [Unknown]
  - Multiple injuries [Unknown]
  - Obesity [Unknown]
  - Blood glucose abnormal [Unknown]
  - Type 2 diabetes mellitus [Unknown]
  - Coronary artery occlusion [Unknown]
  - Dyslipidaemia [Recovering/Resolving]
  - Metabolic syndrome [Unknown]
  - Acute myocardial infarction [Unknown]
  - Fatigue [Unknown]
  - Nerve injury [Unknown]

NARRATIVE: CASE EVENT DATE: 1979
